FAERS Safety Report 10472565 (Version 1)
Quarter: 2014Q3

REPORT INFORMATION
  Report Type: Spontaneous
  Country: US (occurrence: US)
  Receive Date: 20140924
  Receipt Date: 20140924
  Transmission Date: 20150326
  Serious: No
  Sender: FDA-Public Use
  Company Number: US-PFIZER INC-2014260385

PATIENT
  Age: 42 Year
  Sex: Female
  Weight: 104.3 kg

DRUGS (3)
  1. CELEXA [Interacting]
     Active Substance: CITALOPRAM HYDROBROMIDE
     Dosage: UNK
  2. CHANTIX [Suspect]
     Active Substance: VARENICLINE TARTRATE
     Indication: SMOKING CESSATION THERAPY
     Dosage: UNK
     Dates: start: 2008, end: 2011
  3. LEXAPRO [Interacting]
     Active Substance: ESCITALOPRAM OXALATE
     Dosage: UNK

REACTIONS (3)
  - Drug interaction [Unknown]
  - Irritability [Unknown]
  - Potentiating drug interaction [Unknown]
